FAERS Safety Report 6711999-2 (Version None)
Quarter: 2010Q2

REPORT INFORMATION
  Report Type: 
  Country: None (occurrence: None)
  Receive Date: 20100505
  Receipt Date: 20100423
  Transmission Date: 20101027
  Serious: Yes (Other)
  Sender: FDA-Public Use
  Company Number: US-JNJCH-2010010018

PATIENT
  Age: 80 Year
  Sex: Male

DRUGS (4)
  1. BENGAY ULTRA STRENGTH [Suspect]
     Indication: PAIN
     Dosage: TEXT:ONCE UNSPECIFIED
     Route: 061
     Dates: start: 20100419, end: 20100419
  2. ZOCOR [Concomitant]
     Indication: BLOOD CHOLESTEROL
     Route: 065
  3. NIASPAN [Concomitant]
     Indication: BLOOD CHOLESTEROL
     Dosage: TEXT:UNSPECIFIED
     Route: 065
  4. QUESTRAN [Concomitant]
     Indication: BLOOD CHOLESTEROL
     Dosage: TEXT:UNSPECIFIED
     Route: 065

REACTIONS (2)
  - BLISTER [None]
  - RASH [None]
